FAERS Safety Report 8396809 (Version 2)
Quarter: 2013Q2

REPORT INFORMATION
  Report Type: Spontaneous
  Country: US (occurrence: US)
  Receive Date: 20120209
  Receipt Date: 20130617
  Transmission Date: 20140414
  Serious: Yes (Hospitalization)
  Sender: FDA-Public Use
  Company Number: US-BIOGENIDEC-2012BI003720

PATIENT
  Age: 58 Year
  Sex: Female

DRUGS (1)
  1. AVONEX [Suspect]
     Indication: MULTIPLE SCLEROSIS
     Route: 030
     Dates: start: 20110412

REACTIONS (16)
  - Meniscus operation [Recovered/Resolved]
  - Cognitive disorder [Unknown]
  - Memory impairment [Unknown]
  - Fall [Recovered/Resolved]
  - Plantar fasciitis [Unknown]
  - Colitis [Unknown]
  - Multiple sclerosis [Unknown]
  - Fear [Unknown]
  - Gait disturbance [Unknown]
  - Hypoaesthesia [Unknown]
  - Muscle spasticity [Unknown]
  - Muscle spasms [Unknown]
  - Arthritis [Unknown]
  - Fatigue [Unknown]
  - Pain [Unknown]
  - Headache [Unknown]
